FAERS Safety Report 10314386 (Version 1)
Quarter: 2014Q3

REPORT INFORMATION
  Report Type: Spontaneous
  Country: JP (occurrence: None)
  Receive Date: 20140717
  Receipt Date: 20140717
  Transmission Date: 20150326
  Serious: Yes (Death, Other)
  Sender: FDA-Public Use
  Company Number: RB-69101-2014

PATIENT
  Age: 83 Year
  Sex: Male

DRUGS (5)
  1. FENTANYL. [Concomitant]
     Active Substance: FENTANYL
  2. LEPETAN SUPPOSITORY [Suspect]
     Active Substance: BUPRENORPHINE HYDROCHLORIDE
     Indication: PAIN
     Route: 054
     Dates: start: 20140526, end: 20140614
  3. PREGABALIN. [Concomitant]
     Active Substance: PREGABALIN
  4. CLYSTERS ( GLYCEROL, THYMOL) [Concomitant]
  5. TRAMADOL HYDROCHLORIDE AND ACETAMINOPHEN (PARACETAMOL) [Concomitant]

REACTIONS (4)
  - Dyspnoea [None]
  - Acute pulmonary oedema [None]
  - Cardiac failure [None]
  - Cardio-respiratory arrest [None]

NARRATIVE: CASE EVENT DATE: 20140614
